FAERS Safety Report 12340080 (Version 3)
Quarter: 2016Q2

REPORT INFORMATION
  Report Type: Report from Study
  Country: BE (occurrence: BE)
  Receive Date: 20160506
  Receipt Date: 20160622
  Transmission Date: 20160815
  Serious: Yes (Other)
  Sender: FDA-Public Use
  Company Number: BE-AMGEN-BELNI2016057124

PATIENT
  Age: 70 Year
  Sex: Male

DRUGS (2)
  1. CARFILZOMIB [Suspect]
     Active Substance: CARFILZOMIB
     Dosage: 30 MG, QWK
     Route: 042
     Dates: start: 20160414
  2. CARFILZOMIB [Suspect]
     Active Substance: CARFILZOMIB
     Indication: PRODUCT USED FOR UNKNOWN INDICATION
     Dosage: UNK
     Route: 065

REACTIONS (3)
  - Hypertension [Recovered/Resolved]
  - Thrombocytopenia [Not Recovered/Not Resolved]
  - Brain natriuretic peptide abnormal [Unknown]

NARRATIVE: CASE EVENT DATE: 20160422
